FAERS Safety Report 7248611-2 (Version None)
Quarter: 2011Q1

REPORT INFORMATION
  Report Type: 
  Country: None (occurrence: None)
  Receive Date: 20110128
  Receipt Date: 20110110
  Transmission Date: 20110831
  Serious: Yes (Hospitalization, Other)
  Sender: FDA-Public Use
  Company Number: US-BAYER-2011-003041

PATIENT
  Age: 70 Year
  Sex: Male
  Weight: 227 kg

DRUGS (18)
  1. SORAFENIB (RAF KINASE INHIBITOR) [Suspect]
     Dosage: 400 MG, BID
     Route: 048
     Dates: start: 20101119, end: 20101130
  2. LUNESTA [Concomitant]
     Indication: INSOMNIA
     Dosage: 2 MG, PRN
  3. CIPRO [Concomitant]
     Dosage: 500 MG, BID
     Dates: start: 20101106
  4. SORAFENIB (RAF KINASE INHIBITOR) [Suspect]
     Indication: HEPATIC NEOPLASM MALIGNANT
     Dosage: 400 MG, BID
     Route: 048
     Dates: start: 20101029, end: 20101112
  5. SORAFENIB (RAF KINASE INHIBITOR) [Suspect]
     Dosage: 400 MG, QD
     Dates: start: 20101209, end: 20101216
  6. ASPIRIN [Suspect]
     Dosage: 350 MG, QD
  7. DOXORUBICIN HCL [Suspect]
     Dosage: 100 MG, UNK
     Dates: start: 20101215, end: 20101215
  8. LACTULOSE [Concomitant]
     Indication: CONSTIPATION
     Dosage: 10G/15 ML BID PRN
  9. METFORMIN [Concomitant]
     Indication: DIABETES MELLITUS
     Dosage: 1000 MG, BID
  10. PROTONIX [Concomitant]
     Dosage: 40 MG, QD
  11. SIMVASTATIN [Concomitant]
     Indication: HYPERCHOLESTEROLAEMIA
     Dosage: 40 MG, HS
  12. DOXORUBICIN HCL [Suspect]
     Indication: HEPATIC NEOPLASM MALIGNANT
     Dosage: 100 MG, UNK
     Dates: start: 20101105, end: 20101105
  13. ASPIRIN [Suspect]
     Dosage: 81 MG, QD
     Dates: start: 20080101
  14. PROPRANOLOL [Concomitant]
     Indication: HYPERTENSION
     Dosage: 5 MG, UNK
  15. PLAVIX [Concomitant]
     Indication: CORONARY ARTERY DISEASE
     Dosage: 75 MG, QD
  16. GLIMEPIRIDE [Concomitant]
     Indication: DIABETES MELLITUS
     Dosage: 2 MG, QD
  17. LOTREL [Concomitant]
     Indication: HYPERTENSION
     Dosage: 520 MG, QD
  18. OXYCODONE HCL [Concomitant]
     Indication: PAIN
     Dosage: 5 MG, PRN

REACTIONS (5)
  - ABDOMINAL PAIN UPPER [None]
  - BILE DUCT OBSTRUCTION [None]
  - NAUSEA [None]
  - THROMBOCYTOPENIA [None]
  - HYPERBILIRUBINAEMIA [None]
